FAERS Safety Report 13158689 (Version 2)
Quarter: 2018Q1

REPORT INFORMATION
  Report Type: Spontaneous
  Country: JP (occurrence: JP)
  Receive Date: 20170127
  Receipt Date: 20180305
  Transmission Date: 20180508
  Serious: Yes (Hospitalization)
  Sender: FDA-Public Use
  Company Number: JP-ACTELION-A-CH2016-132131

PATIENT
  Age: 39 Year
  Sex: Female

DRUGS (16)
  1. PROGRAF [Concomitant]
     Active Substance: TACROLIMUS\TACROLIMUS ANHYDROUS
  2. TACROLIMUS. [Concomitant]
     Active Substance: TACROLIMUS
  3. BACTRAMIN [Concomitant]
     Active Substance: SULFAMETHOXAZOLE\TRIMETHOPRIM
  4. DEZOLAM [Concomitant]
     Active Substance: ETIZOLAM
  5. ADCIRCA [Concomitant]
     Active Substance: TADALAFIL
  6. RABEPRAZOL [Concomitant]
     Active Substance: RABEPRAZOLE
  7. OPSUMIT [Suspect]
     Active Substance: MACITENTAN
     Indication: PULMONARY ARTERIAL HYPERTENSION
     Dosage: 10 MG, QD
     Route: 048
     Dates: start: 20160116, end: 20160216
  8. ZOLPIDEM [Concomitant]
     Active Substance: ZOLPIDEM\ZOLPIDEM TARTRATE
  9. PREDNISOLONE. [Concomitant]
     Active Substance: PREDNISOLONE
  10. WARFARIN [Concomitant]
     Active Substance: WARFARIN
  11. ALFACALCIDOL [Concomitant]
     Active Substance: ALFACALCIDOL
  12. OXYGEN. [Concomitant]
     Active Substance: OXYGEN
  13. FUROSEMIDE. [Concomitant]
     Active Substance: FUROSEMIDE
  14. EPOPROSTENOL ACT [Concomitant]
     Active Substance: EPOPROSTENOL
     Indication: PULMONARY ARTERIAL HYPERTENSION
     Route: 042
  15. ALENDRONAT [Concomitant]
     Active Substance: ALENDRONATE SODIUM
  16. ZYPREXA [Concomitant]
     Active Substance: OLANZAPINE

REACTIONS (6)
  - Systemic lupus erythematosus [Unknown]
  - Anaemia [Recovered/Resolved]
  - Right ventricular failure [Recovering/Resolving]
  - Oedema [Recovering/Resolving]
  - Dyspnoea [Recovering/Resolving]
  - Concomitant disease aggravated [Recovering/Resolving]

NARRATIVE: CASE EVENT DATE: 20160215
